FAERS Safety Report 9166127 (Version 1)
Quarter: 2013Q1

REPORT INFORMATION
  Report Type: Spontaneous
  Country: US (occurrence: US)
  Receive Date: 20130315
  Receipt Date: 20130315
  Transmission Date: 20140127
  Serious: No
  Sender: FDA-Public Use
  Company Number: US-PFIZER INC-2013087682

PATIENT
  Age: 78 Year
  Sex: Female
  Weight: 73.47 kg

DRUGS (5)
  1. LYRICA [Suspect]
     Indication: PAIN
     Dosage: 75 MG, 2X/DAY
     Dates: start: 20130304
  2. LYRICA [Suspect]
     Dosage: 150 MG, 2X/DAY
     Dates: start: 20130307
  3. LYRICA [Suspect]
     Dosage: UNK
     Dates: start: 201303
  4. HYDROCODONE W/ACETAMINOPHEN [Suspect]
     Indication: PAIN
     Dosage: 5/325MG,4X/DAY
     Dates: start: 20130307
  5. LEXAPRO [Concomitant]
     Indication: ANXIETY
     Dosage: 5 MG, 1X/DAY

REACTIONS (2)
  - Fatigue [Not Recovered/Not Resolved]
  - Dizziness [Not Recovered/Not Resolved]
